FAERS Safety Report 13982576 (Version 1)
Quarter: 2017Q3

REPORT INFORMATION
  Report Type: Spontaneous
  Country: US (occurrence: US)
  Receive Date: 20170918
  Receipt Date: 20170918
  Transmission Date: 20171128
  Serious: No
  Sender: FDA-Public Use
  Company Number: US-LEADIANT BIOSCIENCES INC-2016STPI000674

PATIENT
  Age: 85 Year
  Sex: Male

DRUGS (1)
  1. MATULANE [Suspect]
     Active Substance: PROCARBAZINE HYDROCHLORIDE
     Indication: HODGKIN^S DISEASE
     Dosage: 100 MG QD
     Route: 048
     Dates: start: 20160706

REACTIONS (3)
  - Diarrhoea [Unknown]
  - Urinary retention [None]
  - Blood sodium decreased [None]

NARRATIVE: CASE EVENT DATE: 201608
